FAERS Safety Report 15632885 (Version 1)
Quarter: 2018Q4

REPORT INFORMATION
  Report Type: Spontaneous
  Country: US (occurrence: US)
  Receive Date: 20181113
  Receipt Date: 20181113
  Transmission Date: 20190205
  Serious: No
  Sender: FDA-Public Use
  Company Number: None

PATIENT
  Age: 27 Year
  Sex: Female
  Weight: 108 kg

DRUGS (1)
  1. MEDROXYPROGESTERONE ACETATE INJECTABLE SUSPENSION, USP [Suspect]
     Active Substance: MEDROXYPROGESTERONE ACETATE
     Indication: CONTRACEPTION
     Dosage: QUANTITY:1 ML;OTHER FREQUENCY:EVERY 90 DAYS;?
     Route: 030
     Dates: start: 20130301, end: 20181112

REACTIONS (7)
  - Peripheral swelling [None]
  - Erythema [None]
  - Hypokinesia [None]
  - Urticaria [None]
  - Pain in extremity [None]
  - Burning sensation [None]
  - Injection related reaction [None]

NARRATIVE: CASE EVENT DATE: 20181112
